FAERS Safety Report 24262944 (Version 1)
Quarter: 2024Q3

REPORT INFORMATION
  Report Type: Spontaneous
  Country: US (occurrence: US)
  Receive Date: 20240829
  Receipt Date: 20240829
  Transmission Date: 20241017
  Serious: No
  Sender: IMMUNOGEN
  Company Number: US-IMMUNOGEN, INC.-US-IMGN-24-00539

PATIENT
  Sex: Female

DRUGS (1)
  1. ELAHERE [Suspect]
     Active Substance: MIRVETUXIMAB SORAVTANSINE-GYNX
     Indication: Ovarian cancer
     Dosage: 2 CYCLES
     Route: 042
     Dates: start: 202405

REACTIONS (1)
  - Vision blurred [Unknown]
